FAERS Safety Report 13661788 (Version 1)
Quarter: 2017Q2

REPORT INFORMATION
  Report Type: Spontaneous
  Country: US (occurrence: US)
  Receive Date: 20170616
  Receipt Date: 20170616
  Transmission Date: 20170830
  Serious: Yes (Life-Threatening, Other)
  Sender: FDA-Public Use
  Company Number: US-MYLANLABS-2017M1035979

PATIENT

DRUGS (3)
  1. WARFARIN [Suspect]
     Active Substance: WARFARIN
     Indication: PRODUCT USED FOR UNKNOWN INDICATION
     Dosage: 7.5MG/DAY, DOSE INCREASED TO 10 MG/DAY
     Route: 065
  2. ENOXAPARIN SODIUM. [Concomitant]
     Active Substance: ENOXAPARIN SODIUM
     Indication: PRODUCT USED FOR UNKNOWN INDICATION
     Route: 058
  3. WARFARIN [Suspect]
     Active Substance: WARFARIN
     Dosage: 10MG/DAY
     Route: 065

REACTIONS (2)
  - Intracranial tumour haemorrhage [Recovering/Resolving]
  - Tachycardia [Recovering/Resolving]
